FAERS Safety Report 17637687 (Version 1)
Quarter: 2020Q2

REPORT INFORMATION
  Report Type: Spontaneous
  Country: GB (occurrence: GB)
  Receive Date: 20200407
  Receipt Date: 20200407
  Transmission Date: 20200713
  Serious: Yes (Life-Threatening, Hospitalization)
  Sender: FDA-Public Use
  Company Number: GB-TEVA-2020-GB-1219964

PATIENT
  Age: 56 Year
  Sex: Female
  Weight: 97 kg

DRUGS (9)
  1. DEXAMETHASONE. [Concomitant]
     Active Substance: DEXAMETHASONE
  2. LACTULOSE. [Concomitant]
     Active Substance: LACTULOSE
  3. SOLIFENACIN [Concomitant]
     Active Substance: SOLIFENACIN
  4. GAVISCON ADVANCE [Concomitant]
     Active Substance: POTASSIUM BICARBONATE\SODIUM ALGINATE
  5. SERTRALINE [Concomitant]
     Active Substance: SERTRALINE HYDROCHLORIDE
  6. CISPLATIN. [Suspect]
     Active Substance: CISPLATIN
     Indication: FALLOPIAN TUBE CANCER METASTATIC
     Dosage: 2ND DOSE IN TREATMENT CYCLE
     Route: 042
     Dates: start: 20200227, end: 20200319
  7. PARACETAMOL [Concomitant]
     Active Substance: ACETAMINOPHEN
  8. METOCLOPRAMIDE. [Concomitant]
     Active Substance: METOCLOPRAMIDE
  9. PANTOPRAZOLE SODIUM. [Concomitant]
     Active Substance: PANTOPRAZOLE SODIUM

REACTIONS (1)
  - Anaphylactic reaction [Recovered/Resolved]
